FAERS Safety Report 6619572-1 (Version None)
Quarter: 2010Q1

REPORT INFORMATION
  Report Type: 
  Country: None (occurrence: None)
  Receive Date: 20100304
  Receipt Date: 20100216
  Transmission Date: 20100710
  Serious: Yes (Hospitalization)
  Sender: FDA-Public Use
  Company Number: 2010AL001151

PATIENT
  Age: 74 Year
  Sex: Male

DRUGS (1)
  1. DICLOFENAC SODIUM [Suspect]
     Indication: PAIN
     Dates: start: 20080519, end: 20080716

REACTIONS (11)
  - ABDOMINAL HERNIA [None]
  - BONE DISORDER [None]
  - GASTRIC ULCER PERFORATION [None]
  - INFECTION [None]
  - INJURY [None]
  - JOINT STIFFNESS [None]
  - MALAISE [None]
  - OSTEOMYELITIS [None]
  - PAIN [None]
  - POST PROCEDURAL COMPLICATION [None]
  - WOUND COMPLICATION [None]
